FAERS Safety Report 8348398-6 (Version None)
Quarter: 2012Q2

REPORT INFORMATION
  Report Type: 
  Country: None (occurrence: None)
  Receive Date: 20120509
  Receipt Date: 20120502
  Transmission Date: 20120825
  Serious: Yes (Hospitalization)
  Sender: FDA-Public Use
  Company Number: FR-FRI-1000030373

PATIENT
  Sex: Male

DRUGS (5)
  1. ATORVASTATIN [Concomitant]
     Indication: HYPERCHOLESTEROLAEMIA
     Dosage: 60 MG
     Route: 048
  2. PENTOXIFYLLINE [Suspect]
     Dosage: 20 MG ALTERNATED WITH 1.25 DAY
     Route: 048
     Dates: end: 20120409
  3. ATACAND [Suspect]
     Indication: HYPERTENSION
     Dosage: 16 MG
     Route: 048
     Dates: end: 20120406
  4. NEBIVOLOL [Suspect]
     Indication: HYPERTENSION
     Dosage: 7.5 MG
     Route: 048
     Dates: end: 20120407
  5. LASIX [Suspect]
     Indication: HYPERTENSION
     Dosage: 500 MG
     Route: 048
     Dates: end: 20120407

REACTIONS (2)
  - RENAL FAILURE ACUTE [None]
  - SEPSIS [None]
